FAERS Safety Report 6267514-3 (Version None)
Quarter: 2009Q3

REPORT INFORMATION
  Report Type: 
  Country: None (occurrence: None)
  Receive Date: 20090714
  Receipt Date: 20090709
  Transmission Date: 20100115
  Serious: Yes (Other)
  Sender: FDA-Public Use
  Company Number: ES-MERCK-0907ESP00013

PATIENT
  Age: 81 Year
  Sex: Female

DRUGS (2)
  1. ZOCOR [Suspect]
     Route: 048
     Dates: start: 20070101, end: 20081230
  2. HALOPERIDOL [Suspect]
     Route: 048
     Dates: start: 20070101, end: 20081230

REACTIONS (2)
  - LIVER DISORDER [None]
  - MYOPATHY [None]
